FAERS Safety Report 16327965 (Version 6)
Quarter: 2020Q1

REPORT INFORMATION
  Report Type: Spontaneous
  Country: CA (occurrence: CA)
  Receive Date: 20190518
  Receipt Date: 20200109
  Transmission Date: 20200409
  Serious: Yes (Other)
  Sender: FDA-Public Use
  Company Number: CA-AUROBINDO-AUR-APL-2019-026299

PATIENT
  Age: 94 Year
  Sex: Female

DRUGS (40)
  1. GABAPENTIN. [Suspect]
     Active Substance: GABAPENTIN
     Indication: BACK PAIN
     Dosage: UNK
     Route: 065
  2. GABAPENTIN. [Suspect]
     Active Substance: GABAPENTIN
     Indication: PAIN
  3. GABAPENTIN. [Suspect]
     Active Substance: GABAPENTIN
     Indication: NECK PAIN
  4. QUETIAPINE FILM-COATED TABLET [Suspect]
     Active Substance: QUETIAPINE
     Indication: PAIN
     Dosage: UNK
     Route: 048
  5. HYDROMORPH CONTIN [Suspect]
     Active Substance: HYDROMORPHONE
     Indication: PAIN
  6. DULOXETINE. [Suspect]
     Active Substance: DULOXETINE
     Indication: BACK PAIN
     Dosage: 30 MILLIGRAM, ONCE A DAY
     Route: 048
  7. PREGABALIN CAPSULES [Suspect]
     Active Substance: PREGABALIN
     Indication: BACK PAIN
     Dosage: UNK
     Route: 065
  8. ACETAMINOPHEN;BUTALBITAL [Suspect]
     Active Substance: ACETAMINOPHEN\BUTALBITAL
     Indication: PAIN IN EXTREMITY
     Dosage: 1000 MILLIGRAM, 3 TIMES A DAY
     Route: 048
  9. CODEINE [Suspect]
     Active Substance: CODEINE
     Indication: NECK PAIN
  10. OXYCODONE HYDROCHLORIDE. [Suspect]
     Active Substance: OXYCODONE HYDROCHLORIDE
     Indication: PAIN IN EXTREMITY
     Dosage: UNK
     Route: 065
  11. PREGABALIN CAPSULES [Suspect]
     Active Substance: PREGABALIN
     Indication: PAIN IN EXTREMITY
  12. APO DULOXETINE [Suspect]
     Active Substance: DULOXETINE
     Indication: PAIN
     Dosage: 30 MILLIGRAM, ONCE A DAY
     Route: 048
  13. APO HYDROMORPHONE [Suspect]
     Active Substance: HYDROMORPHONE HYDROCHLORIDE
     Dosage: 1 MILLIGRAM, FOUR TIMES/DAY
     Route: 048
  14. HYDROMORPH CONTIN [Suspect]
     Active Substance: HYDROMORPHONE
     Indication: BACK PAIN
     Dosage: 6 MILLIGRAM, TWO TIMES A DAY
     Route: 048
  15. HYDROMORPHONE HYDROCHLORIDE. [Suspect]
     Active Substance: HYDROMORPHONE HYDROCHLORIDE
     Indication: NECK PAIN
     Dosage: 4 DOSAGE FORM, ONCE A DAY
     Route: 048
  16. DULOXETINE. [Suspect]
     Active Substance: DULOXETINE
     Indication: PAIN IN EXTREMITY
     Dosage: 1 DOSAGE FORM, ONCE A DAY
     Route: 048
  17. APO-GABAPENTIN [Suspect]
     Active Substance: GABAPENTIN
     Indication: PAIN
     Dosage: UNK
     Route: 065
  18. HYDROMORPHONE HYDROCHLORIDE. [Suspect]
     Active Substance: HYDROMORPHONE HYDROCHLORIDE
     Indication: BACK PAIN
     Dosage: 1 MILLIGRAM,1 EVERY 4 HOURS
     Route: 048
  19. HYDROMORPHONE HYDROCHLORIDE. [Suspect]
     Active Substance: HYDROMORPHONE HYDROCHLORIDE
     Indication: NEURALGIA
     Dosage: 1 MILLIGRAM,4 EVERY 1 DAYS
     Route: 048
  20. QUETIAPINE. [Concomitant]
     Active Substance: QUETIAPINE
     Indication: SCREAMING
     Dosage: 25 MILLIGRAM
     Route: 048
  21. PREGABALIN CAPSULES [Suspect]
     Active Substance: PREGABALIN
     Indication: NECK PAIN
  22. QUETIAPINE FILM-COATED TABLET [Suspect]
     Active Substance: QUETIAPINE
     Indication: SCREAMING
     Dosage: 37.5 MILLIGRAM
     Route: 048
  23. APO HYDROMORPHONE [Suspect]
     Active Substance: HYDROMORPHONE HYDROCHLORIDE
     Indication: PAIN
     Dosage: 1 MILLIGRAM
     Route: 048
  24. CODEINE [Suspect]
     Active Substance: CODEINE
     Indication: NEURALGIA
  25. HYDROMORPHONE HYDROCHLORIDE. [Suspect]
     Active Substance: HYDROMORPHONE HYDROCHLORIDE
     Dosage: 0.25 MILLIGRAM
     Route: 048
  26. QUETIAPINE. [Concomitant]
     Active Substance: QUETIAPINE
     Indication: SCREAMING
     Dosage: 12.5 MILLIGRAM
     Route: 048
  27. QUETIAPINE. [Concomitant]
     Active Substance: QUETIAPINE
     Dosage: 25 MILLIGRAM
     Route: 048
  28. DULOXETINE. [Suspect]
     Active Substance: DULOXETINE
     Indication: NECK PAIN
  29. GABAPENTIN. [Suspect]
     Active Substance: GABAPENTIN
     Indication: PAIN IN EXTREMITY
  30. GABAPENTIN. [Suspect]
     Active Substance: GABAPENTIN
     Indication: NEURALGIA
  31. QUETIAPINE FILM-COATED TABLET [Suspect]
     Active Substance: QUETIAPINE
     Dosage: 12.5 MILLIGRAM, ONCE A DAY
     Route: 048
  32. APO PREGABALIN [Suspect]
     Active Substance: PREGABALIN
     Indication: PAIN
     Dosage: UNK
     Route: 065
  33. ACETAMINOPHEN;BUTALBITAL [Suspect]
     Active Substance: ACETAMINOPHEN\BUTALBITAL
     Indication: NEURALGIA
     Dosage: UNK
     Route: 065
  34. OXYCODONE HYDROCHLORIDE. [Suspect]
     Active Substance: OXYCODONE HYDROCHLORIDE
     Indication: NECK PAIN
  35. OXYCODONE HYDROCHLORIDE. [Suspect]
     Active Substance: OXYCODONE HYDROCHLORIDE
     Indication: NEURALGIA
  36. DULOXETINE. [Suspect]
     Active Substance: DULOXETINE
     Indication: NEURALGIA
  37. PREGABALIN CAPSULES [Suspect]
     Active Substance: PREGABALIN
     Indication: NEURALGIA
  38. ACETAMINOPHEN;BUTALBITAL [Suspect]
     Active Substance: ACETAMINOPHEN\BUTALBITAL
     Indication: NECK PAIN
  39. CODEINE [Suspect]
     Active Substance: CODEINE
     Indication: PAIN IN EXTREMITY
     Dosage: UNK
     Route: 065
  40. HYDROMORPHONE HYDROCHLORIDE. [Suspect]
     Active Substance: HYDROMORPHONE HYDROCHLORIDE
     Indication: PAIN IN EXTREMITY
     Dosage: 1 MILLIGRAM
     Route: 048

REACTIONS (7)
  - Pain [Recovered/Resolved]
  - Confusional state [Recovered/Resolved]
  - Drug ineffective for unapproved indication [Recovered/Resolved]
  - Therapeutic product effect incomplete [Unknown]
  - Delirium [Recovered/Resolved]
  - Sedation [Recovered/Resolved]
  - Drug ineffective [Unknown]
